FAERS Safety Report 19583098 (Version 2)
Quarter: 2023Q1

REPORT INFORMATION
  Report Type: Other
  Country: US (occurrence: None)
  Receive Date: 20210720
  Receipt Date: 20230331
  Transmission Date: 20230418
  Serious: Yes (Hospitalization)
  Sender: FDA-Public Use
  Company Number: US-ROCHE-1240128

PATIENT
  Age: 79 Year
  Sex: Male
  Weight: 117.48 kg

DRUGS (28)
  1. XOLAIR [Suspect]
     Active Substance: OMALIZUMAB
     Indication: Asthma
     Route: 058
     Dates: start: 2006
  2. XOLAIR [Suspect]
     Active Substance: OMALIZUMAB
  3. IRBESARTAN [Concomitant]
     Active Substance: IRBESARTAN
     Indication: Blood pressure measurement
     Route: 048
  4. METFORMIN [Concomitant]
     Active Substance: METFORMIN HYDROCHLORIDE
     Indication: Diabetes mellitus
  5. DOXAZOSIN [Concomitant]
     Active Substance: DOXAZOSIN MESYLATE
     Indication: Blood pressure measurement
     Route: 048
     Dates: start: 2007
  6. ADVAIR DISKUS [Concomitant]
     Active Substance: FLUTICASONE PROPIONATE\SALMETEROL XINAFOATE
     Indication: Asthma
     Route: 048
     Dates: start: 2000
  7. XOPENEX [Concomitant]
     Active Substance: LEVALBUTEROL HYDROCHLORIDE
     Indication: Asthma
     Dates: start: 2000
  8. Glibenclamide/Metformin Hydrochloride [Concomitant]
     Indication: Diabetes mellitus
  9. LEVALBUTEROL [Concomitant]
     Active Substance: LEVALBUTEROL
     Dosage: EVERY 4 TO 6 HOUR
  10. INCRUSE ELLIPTA [Concomitant]
     Active Substance: UMECLIDINIUM BROMIDE
     Route: 055
  11. AZITHROMYCIN [Concomitant]
     Active Substance: AZITHROMYCIN
     Route: 048
  12. ZITHROMAX [Concomitant]
     Active Substance: AZITHROMYCIN DIHYDRATE
     Route: 048
  13. ALBUTEROL SULFATE [Concomitant]
     Active Substance: ALBUTEROL SULFATE
     Route: 055
  14. BUMETANIDE [Concomitant]
     Active Substance: BUMETANIDE
  15. POTASSIUM CHLORIDE [Concomitant]
     Active Substance: POTASSIUM CHLORIDE
     Dosage: 20 TABLET
  16. CLOPIDOGREL [Concomitant]
     Active Substance: CLOPIDOGREL BISULFATE
  17. TRESIBA [Concomitant]
     Active Substance: INSULIN DEGLUDEC
  18. TRULICITY [Concomitant]
     Active Substance: DULAGLUTIDE
     Route: 058
  19. CRESTOR [Concomitant]
     Active Substance: ROSUVASTATIN CALCIUM
     Route: 048
  20. ECONAZOLE [Concomitant]
     Active Substance: ECONAZOLE
  21. MONTELUKAST [Concomitant]
     Active Substance: MONTELUKAST SODIUM
     Route: 048
  22. PATANASE [Concomitant]
     Active Substance: OLOPATADINE HYDROCHLORIDE
  23. ALLOPURINOL [Concomitant]
     Active Substance: ALLOPURINOL
  24. TRADJENTA [Concomitant]
     Active Substance: LINAGLIPTIN
  25. FISH OIL [Concomitant]
     Active Substance: FISH OIL
     Route: 048
  26. ZETIA [Concomitant]
     Active Substance: EZETIMIBE
  27. NITROSTAT [Concomitant]
     Active Substance: NITROGLYCERIN
  28. FLUTICASONE [Concomitant]
     Active Substance: FLUTICASONE

REACTIONS (10)
  - Asthma [Unknown]
  - Dyspnoea [Unknown]
  - Asthma [Recovered/Resolved]
  - Off label use [Unknown]
  - Off label use [Unknown]
  - Sputum discoloured [Unknown]
  - Fatigue [Unknown]
  - Sinus disorder [Unknown]
  - Pharyngeal disorder [Unknown]
  - Restless legs syndrome [Unknown]

NARRATIVE: CASE EVENT DATE: 20130201
